FAERS Safety Report 17533692 (Version 1)
Quarter: 2020Q1

REPORT INFORMATION
  Report Type: Spontaneous
  Country: US (occurrence: US)
  Receive Date: 20200312
  Receipt Date: 20200312
  Transmission Date: 20200409
  Serious: No
  Sender: FDA-Public Use
  Company Number: None

PATIENT
  Sex: Female

DRUGS (22)
  1. CALCIUM D [Concomitant]
     Active Substance: CALCIUM\VITAMIN D
  2. FLUTICASON [Concomitant]
     Active Substance: FLUTICASONE
  3. MULTI-VITAMIN [Concomitant]
     Active Substance: .ALPHA.-TOCOPHEROL ACETATE, DL-\ASCORBIC ACID\CYANOCOBALAMIN\FLUORIDE ION\FOLIC ACID\NIACIN\PYRIDOXINE\RIBOFLAVIN\THIAMINE\VITAMIN A\VITAMIN D
  4. PLAVIX [Concomitant]
     Active Substance: CLOPIDOGREL BISULFATE
  5. TRIAMTERENE. [Concomitant]
     Active Substance: TRIAMTERENE
  6. DERMASORB [Concomitant]
  7. HYLATOPIC [Concomitant]
  8. LIPITOR [Concomitant]
     Active Substance: ATORVASTATIN CALCIUM
  9. AMLODIPINE [Concomitant]
     Active Substance: AMLODIPINE BESYLATE
  10. SYNTHROID [Concomitant]
     Active Substance: LEVOTHYROXINE SODIUM
  11. ATORVASTATIN [Concomitant]
     Active Substance: ATORVASTATIN
  12. TACLONEX [Concomitant]
     Active Substance: BETAMETHASONE DIPROPIONATE\CALCIPOTRIENE\CALCIPOTRIENE HYDRATE
  13. ZANTAC [Concomitant]
     Active Substance: RANITIDINE HYDROCHLORIDE
  14. CALCIUM +D [Concomitant]
     Active Substance: CALCIUM\VITAMIN D
  15. FISH OIL [Concomitant]
     Active Substance: FISH OIL
  16. MULTAQ [Concomitant]
     Active Substance: DRONEDARONE
  17. OTZELA ,OXYCOD/APAP [Concomitant]
  18. VITAMIN D3 [Concomitant]
     Active Substance: CHOLECALCIFEROL
  19. COSENTYX [Suspect]
     Active Substance: SECUKINUMAB
     Indication: PSORIATIC ARTHROPATHY
     Dosage: ?          OTHER FREQUENCY:EVERY 28 DAYS;OTHER ROUTE:INJECTION?
     Dates: start: 20190103
  20. CALCIPOTRIEN OIN BERAMETH [Concomitant]
  21. ALLERGY-D [Concomitant]
     Active Substance: CHLORPHENIRAMINE MALEATE\PSEUDOEPHEDRINE HYDROCHLORIDE
  22. GABAPENTIN. [Concomitant]
     Active Substance: GABAPENTIN

REACTIONS (3)
  - Arthralgia [None]
  - Psoriatic arthropathy [None]
  - Rash [None]
